FAERS Safety Report 7217009-5 (Version None)
Quarter: 2011Q1

REPORT INFORMATION
  Report Type: 
  Country: None (occurrence: None)
  Receive Date: 20110105
  Receipt Date: 20110105
  Transmission Date: 20110831
  Serious: Yes (Hospitalization)
  Sender: FDA-Public Use
  Company Number: None

PATIENT
  Age: 9 Year
  Sex: Male
  Weight: 18.2 kg

DRUGS (13)
  1. GLYCERIN SUPPOSITORY [Concomitant]
  2. DEPOKENE/VALPROIC ACID [Concomitant]
  3. ONDANSETRON [Concomitant]
  4. BACLOFEN [Concomitant]
  5. BACTRIM [Concomitant]
  6. MIRALAX [Concomitant]
  7. BISACODYL [Concomitant]
  8. SENNA [Concomitant]
  9. ENEMEEZ MINI ENEMA [Concomitant]
  10. RAD001 (EVEROLIMUS) [Suspect]
     Indication: GLIOMA
     Dosage: 4MG/DAY ORAL- 047
     Route: 048
     Dates: start: 20100728, end: 20101216
  11. LAMICTAL [Concomitant]
  12. METOCLOPRAMIDE [Concomitant]
  13. CLINDAMYCIN [Concomitant]

REACTIONS (1)
  - PNEUMONIA BACTERIAL [None]
